FAERS Safety Report 18369997 (Version 2)
Quarter: 2020Q4

REPORT INFORMATION
  Report Type: Spontaneous
  Country: US (occurrence: US)
  Receive Date: 20201012
  Receipt Date: 20201015
  Transmission Date: 20210114
  Serious: Yes (Life-Threatening, Hospitalization)
  Sender: FDA-Public Use
  Company Number: US-ROCHE-2680039

PATIENT
  Age: 79 Year
  Sex: Male
  Weight: 79.9 kg

DRUGS (5)
  1. ACTEMRA [Suspect]
     Active Substance: TOCILIZUMAB
     Indication: RHEUMATOID ARTHRITIS
     Route: 042
     Dates: start: 20181017, end: 20200710
  2. ACTEMRA [Suspect]
     Active Substance: TOCILIZUMAB
     Dosage: 4 MG PER KG; THERAPY ONGOING: UNKNOWN
     Route: 042
     Dates: start: 20181017
  3. METHOTREXATE. [Concomitant]
     Active Substance: METHOTREXATE
     Indication: RHEUMATOID ARTHRITIS
     Route: 048
     Dates: start: 20170423, end: 20200710
  4. FOLIC ACID. [Concomitant]
     Active Substance: FOLIC ACID
  5. IBUPROFEN. [Concomitant]
     Active Substance: IBUPROFEN

REACTIONS (1)
  - Thrombocytopenia [Recovered/Resolved]

NARRATIVE: CASE EVENT DATE: 20200710
